FAERS Safety Report 24873083 (Version 1)
Quarter: 2025Q1

REPORT INFORMATION
  Report Type: Spontaneous
  Country: JP (occurrence: JP)
  Receive Date: 20250122
  Receipt Date: 20250122
  Transmission Date: 20250408
  Serious: Yes (Death)
  Sender: NOVARTIS
  Company Number: JP-002147023-NVSJ2025JP001153

PATIENT
  Age: 6 Year

DRUGS (2)
  1. TAFINLAR [Suspect]
     Active Substance: DABRAFENIB MESYLATE
     Indication: Glioma
     Dosage: 40 MG, BID
     Route: 048
     Dates: start: 20241112
  2. MEKINIST [Suspect]
     Active Substance: TRAMETINIB DIMETHYL SULFOXIDE
     Indication: Glioma
     Dosage: 0.45 MG, QD
     Route: 048
     Dates: start: 20241112

REACTIONS (2)
  - Glioma [Fatal]
  - Malignant neoplasm progression [Fatal]
